FAERS Safety Report 10283373 (Version 1)
Quarter: 2014Q3

REPORT INFORMATION
  Report Type: Spontaneous
  Country: US (occurrence: None)
  Receive Date: 20140702
  Receipt Date: 20140702
  Transmission Date: 20150326
  Serious: Yes (Life-Threatening)
  Sender: FDA-Public Use
  Company Number: None

PATIENT
  Age: 41 Year
  Sex: Female
  Weight: 66.68 kg

DRUGS (1)
  1. DEPAKOTE ER [Suspect]
     Active Substance: DIVALPROEX SODIUM
     Indication: CONVULSION
     Dates: start: 2003

REACTIONS (4)
  - Product substitution issue [None]
  - Abdominal discomfort [None]
  - Drug effect decreased [None]
  - Convulsion [None]

NARRATIVE: CASE EVENT DATE: 200301
